FAERS Safety Report 4943803-7 (Version None)
Quarter: 2006Q1

REPORT INFORMATION
  Report Type: 
  Country: None (occurrence: None)
  Receive Date: 20060314
  Receipt Date: 20050414
  Transmission Date: 20060701
  Serious: Yes (Hospitalization, Other)
  Sender: FDA-Public Use
  Company Number: US-MERCK-0504USA02824

PATIENT
  Age: 66 Year
  Sex: Female
  Weight: 95 kg

DRUGS (10)
  1. VIOXX [Suspect]
     Indication: OSTEOARTHRITIS
     Route: 048
     Dates: start: 20030901, end: 20040401
  2. VIOXX [Suspect]
     Route: 048
     Dates: start: 20030901, end: 20040401
  3. ESTROGENS (UNSPECIFIED) [Concomitant]
     Route: 065
     Dates: start: 20030301, end: 20040201
  4. SYNTHROID [Concomitant]
     Route: 065
  5. BENICAR [Concomitant]
     Route: 065
  6. NEURONTIN [Concomitant]
     Route: 065
  7. NEXIUM [Concomitant]
     Route: 065
  8. WELLBUTRIN [Concomitant]
     Route: 065
  9. XANAX [Concomitant]
     Route: 065
  10. FOSAMAX [Concomitant]
     Route: 065

REACTIONS (19)
  - ABDOMINAL DISCOMFORT [None]
  - AMNESIA [None]
  - ASTHENIA [None]
  - BALANCE DISORDER [None]
  - CARDIAC DISORDER [None]
  - CARDIAC FAILURE CONGESTIVE [None]
  - DEEP VEIN THROMBOSIS [None]
  - DIZZINESS [None]
  - DYSPNOEA [None]
  - FALL [None]
  - GOUT [None]
  - HEMIPLEGIA [None]
  - INTERVERTEBRAL DISC PROTRUSION [None]
  - LOSS OF CONSCIOUSNESS [None]
  - MYOCARDIAL INFARCTION [None]
  - PHLEBITIS [None]
  - STOMACH DISCOMFORT [None]
  - TRANSIENT ISCHAEMIC ATTACK [None]
  - TREMOR [None]
